FAERS Safety Report 14331275 (Version 2)
Quarter: 2024Q3

REPORT INFORMATION
  Report Type: Spontaneous
  Country: DE (occurrence: DE)
  Receive Date: 20171228
  Receipt Date: 20240731
  Transmission Date: 20241016
  Serious: Yes (Hospitalization, Other)
  Sender: AUROBINDO
  Company Number: DE-AUROBINDO-AUR-APL-2017-47446

PATIENT
  Age: 39 Year
  Sex: Female

DRUGS (14)
  1. QUETIAPINE [Suspect]
     Active Substance: QUETIAPINE
     Indication: Mental disorder
     Dosage: 50 MILLIGRAM, DAILY
     Route: 048
     Dates: start: 20160107
  2. QUETIAPINE [Suspect]
     Active Substance: QUETIAPINE
     Dosage: 75 MG, ONCE A DAY
     Route: 048
     Dates: start: 20160108
  3. QUETIAPINE [Suspect]
     Active Substance: QUETIAPINE
     Dosage: 100 MG, ONCE A DAY
     Route: 048
     Dates: start: 20160109, end: 20160118
  4. QUETIAPINE [Suspect]
     Active Substance: QUETIAPINE
     Dosage: 125 MG, ONCE A DAY
     Route: 048
     Dates: start: 20160119, end: 20160124
  5. QUETIAPINE [Suspect]
     Active Substance: QUETIAPINE
     Dosage: 200 MG, ONCE A DAY
     Route: 048
     Dates: start: 20160125, end: 20160127
  6. QUETIAPINE [Suspect]
     Active Substance: QUETIAPINE
     Dosage: 300 MG, ONCE A DAY
     Route: 048
     Dates: start: 20160128
  7. QUETIAPINE [Suspect]
     Active Substance: QUETIAPINE
     Dosage: 350 MG, ONCE A DAY
     Route: 048
     Dates: start: 20160129
  8. QUETIAPINE [Suspect]
     Active Substance: QUETIAPINE
     Dosage: 400 MG, UNK
     Route: 048
     Dates: start: 20160130, end: 20160204
  9. QUETIAPINE [Suspect]
     Active Substance: QUETIAPINE
     Dosage: 425 MG, UNK
     Route: 048
     Dates: start: 20160205
  10. ABILIFY [Suspect]
     Active Substance: ARIPIPRAZOLE
     Indication: Mental disorder
     Dosage: 15 MG, ONCE A DAY
     Route: 048
     Dates: start: 20160103, end: 20160106
  11. ABILIFY [Suspect]
     Active Substance: ARIPIPRAZOLE
     Indication: Personality disorder
     Dosage: 10 MG, ONCE A DAY
     Route: 048
     Dates: start: 20160107, end: 20160120
  12. ABILIFY [Suspect]
     Active Substance: ARIPIPRAZOLE
     Indication: Product used for unknown indication
     Dosage: 5 MG, ONCE A DAY
     Route: 048
     Dates: start: 20160121
  13. ABILIFY [Suspect]
     Active Substance: ARIPIPRAZOLE
     Dosage: 15 MG, UNK
     Route: 065
  14. ABILIFY [Suspect]
     Active Substance: ARIPIPRAZOLE
     Dosage: 15 MG, UNK
     Route: 065

REACTIONS (7)
  - Pain in jaw [Unknown]
  - Bruxism [Unknown]
  - Rabbit syndrome [Unknown]
  - Urinary incontinence [Unknown]
  - Dyskinesia [Recovered/Resolved]
  - Product use in unapproved indication [Unknown]
  - Treatment noncompliance [Unknown]

NARRATIVE: CASE EVENT DATE: 20160120
